FAERS Safety Report 5646262-4 (Version None)
Quarter: 2008Q1

REPORT INFORMATION
  Report Type: 
  Country: None (occurrence: None)
  Receive Date: 20080301
  Receipt Date: 20080221
  Transmission Date: 20080703
  Serious: Yes (Hospitalization, Disabling)
  Sender: FDA-Public Use
  Company Number: US-JNJFOC-20080203403

PATIENT
  Sex: Male
  Weight: 77.57 kg

DRUGS (47)
  1. INFLIXIMAB [Suspect]
     Route: 042
  2. INFLIXIMAB [Suspect]
     Route: 042
  3. INFLIXIMAB [Suspect]
     Route: 042
  4. INFLIXIMAB [Suspect]
     Route: 042
  5. INFLIXIMAB [Suspect]
     Route: 042
  6. INFLIXIMAB [Suspect]
     Route: 042
  7. INFLIXIMAB [Suspect]
     Route: 042
  8. INFLIXIMAB [Suspect]
     Route: 042
  9. INFLIXIMAB [Suspect]
     Route: 042
  10. INFLIXIMAB [Suspect]
     Route: 042
  11. INFLIXIMAB [Suspect]
     Dosage: 4 INFUSIONS PRIOR TO TREAT BASELINE
     Route: 042
  12. INFLIXIMAB [Suspect]
     Route: 042
  13. INFLIXIMAB [Suspect]
     Route: 042
  14. INFLIXIMAB [Suspect]
     Indication: CROHN'S DISEASE
     Route: 042
  15. CORTICOSTEROIDS [Suspect]
     Indication: CROHN'S DISEASE
     Route: 065
  16. HUMIRA [Concomitant]
     Indication: CROHN'S DISEASE
     Route: 065
  17. METHOTREXATE [Concomitant]
     Indication: CROHN'S DISEASE
     Route: 065
  18. ACETAMINOPHEN [Concomitant]
     Route: 065
  19. ACETAMINOPHEN [Concomitant]
     Route: 065
  20. ACETAMINOPHEN [Concomitant]
     Route: 065
  21. ACETAMINOPHEN [Concomitant]
     Route: 065
  22. ACETAMINOPHEN [Concomitant]
     Route: 065
  23. ACETAMINOPHEN [Concomitant]
     Route: 065
  24. ACETAMINOPHEN [Concomitant]
     Route: 065
  25. ACETAMINOPHEN [Concomitant]
     Route: 065
  26. ACETAMINOPHEN [Concomitant]
     Route: 065
  27. ACETAMINOPHEN [Concomitant]
     Indication: PREMEDICATION
     Route: 065
  28. ANTIHISTAMINES [Concomitant]
     Route: 065
  29. ANTIHISTAMINES [Concomitant]
     Route: 065
  30. ANTIHISTAMINES [Concomitant]
     Route: 065
  31. ANTIHISTAMINES [Concomitant]
     Route: 065
  32. ANTIHISTAMINES [Concomitant]
     Route: 065
  33. ANTIHISTAMINES [Concomitant]
     Route: 065
  34. ANTIHISTAMINES [Concomitant]
     Route: 065
  35. ANTIHISTAMINES [Concomitant]
     Route: 065
  36. ANTIHISTAMINES [Concomitant]
     Route: 065
  37. ANTIHISTAMINES [Concomitant]
     Indication: PREMEDICATION
     Route: 065
  38. STEROIDS [Concomitant]
     Route: 065
  39. STEROIDS [Concomitant]
     Route: 065
  40. STEROIDS [Concomitant]
     Route: 065
  41. STEROIDS [Concomitant]
     Route: 065
  42. STEROIDS [Concomitant]
     Route: 065
  43. STEROIDS [Concomitant]
     Route: 065
  44. STEROIDS [Concomitant]
     Route: 065
  45. STEROIDS [Concomitant]
     Route: 065
  46. STEROIDS [Concomitant]
     Route: 065
  47. STEROIDS [Concomitant]
     Indication: PREMEDICATION
     Route: 065

REACTIONS (2)
  - OSTEOPOROSIS [None]
  - SPINAL COMPRESSION FRACTURE [None]
